FAERS Safety Report 7620192-0 (Version None)
Quarter: 2011Q3

REPORT INFORMATION
  Report Type: 
  Country: None (occurrence: None)
  Receive Date: 20110719
  Receipt Date: 20110705
  Transmission Date: 20111222
  Serious: Yes (Hospitalization, Other)
  Sender: FDA-Public Use
  Company Number: PHHY2011US55364

PATIENT
  Sex: Female
  Weight: 162 kg

DRUGS (1)
  1. RECLAST [Suspect]
     Indication: OSTEOPOROSIS
     Dosage: 5 MG, YEARLY
     Route: 042
     Dates: start: 20110616

REACTIONS (14)
  - PLATELET COUNT DECREASED [None]
  - ABSCESS [None]
  - EATING DISORDER [None]
  - PYREXIA [None]
  - DIVERTICULITIS [None]
  - ASTHENIA [None]
  - DEHYDRATION [None]
  - NAUSEA [None]
  - PAIN [None]
  - HEADACHE [None]
  - MUSCULAR WEAKNESS [None]
  - ABDOMINAL PAIN [None]
  - MYALGIA [None]
  - VOMITING [None]
